FAERS Safety Report 14756153 (Version 1)
Quarter: 2018Q2

REPORT INFORMATION
  Report Type: Spontaneous
  Country: US (occurrence: US)
  Receive Date: 20180413
  Receipt Date: 20180413
  Transmission Date: 20180711
  Serious: No
  Sender: FDA-Public Use
  Company Number: US-BION-006739

PATIENT
  Sex: Female
  Weight: 68.04 kg

DRUGS (7)
  1. COLECALCIFEROL [Concomitant]
     Active Substance: CHOLECALCIFEROL
  2. AMYLASE/ASCORBIC ACID/CELLULASE/FOLIC ACID/LIPASE/PROTEASE [Concomitant]
  3. BIOTIN [Concomitant]
     Active Substance: BIOTIN
  4. ASCORBIC ACID/BOSWELLIA SACRA/BROMELAINS/CHONDROITIN SULFATE/GLUCOSAMINE/SELENIUM [Concomitant]
  5. GINKGO BILOBA [Concomitant]
     Active Substance: GINKGO
  6. CYANOCOBALAMIN. [Concomitant]
     Active Substance: CYANOCOBALAMIN
  7. ALEVE [Suspect]
     Active Substance: NAPROXEN SODIUM
     Indication: PAIN
     Dosage: 2 IN THE MORNING WITH FOOD.?DURATION: FOR YEARS
     Route: 048

REACTIONS (3)
  - Incorrect drug administration duration [Not Recovered/Not Resolved]
  - Intentional product misuse [Not Recovered/Not Resolved]
  - Product leakage [Unknown]
